FAERS Safety Report 12338479 (Version 3)
Quarter: 2016Q2

REPORT INFORMATION
  Report Type: Spontaneous
  Country: FI (occurrence: FI)
  Receive Date: 20160505
  Receipt Date: 20160620
  Transmission Date: 20160815
  Serious: Yes (Other)
  Sender: FDA-Public Use
  Company Number: FI-ALEXION PHARMACEUTICALS INC.-A201603083

PATIENT
  Age: 4 Month
  Sex: Female
  Weight: 4.3 kg

DRUGS (3)
  1. STRENSIQ [Suspect]
     Active Substance: ASFOTASE ALFA
     Indication: HYPOPHOSPHATASIA
     Dosage: 4 MG, TIW
     Route: 058
     Dates: start: 20151023
  2. STRENSIQ [Suspect]
     Active Substance: ASFOTASE ALFA
     Dosage: 8 MG, TIW
     Route: 058
  3. NEOCATE [Concomitant]
     Active Substance: DIETARY SUPPLEMENT
     Indication: NUTRITIONAL SUPPLEMENTATION
     Dosage: UNK
     Route: 065

REACTIONS (2)
  - Haematochezia [Recovered/Resolved]
  - Milk allergy [Recovered/Resolved]

NARRATIVE: CASE EVENT DATE: 20160228
